FAERS Safety Report 5018805-5 (Version None)
Quarter: 2006Q2

REPORT INFORMATION
  Report Type: 
  Country: None (occurrence: None)
  Receive Date: 20060531
  Receipt Date: 20060515
  Transmission Date: 20061013
  Serious: Yes (Congenital Anomaly)
  Sender: FDA-Public Use
  Company Number: 2006-086

PATIENT
  Sex: Male

DRUGS (1)
  1. FLUCONAZOLE [Suspect]
     Dosage: 800MG/DAY TRANSPLACENTAL  FROM BEFORE CONCEPTION UNTIL 23 WEEKS
     Route: 064

REACTIONS (29)
  - ANOMALY OF EXTERNAL EAR CONGENITAL [None]
  - BACTERAEMIA [None]
  - BODY DYSMORPHIC DISORDER [None]
  - BRACHYCEPHALY [None]
  - CEREBRAL DISORDER [None]
  - CONGENITAL ANOMALY [None]
  - CONVULSION NEONATAL [None]
  - CRANIOSYNOSTOSIS [None]
  - DEAFNESS BILATERAL [None]
  - DEVELOPMENTAL DELAY [None]
  - DRUG EXPOSURE DURING PREGNANCY [None]
  - DRUG WITHDRAWAL SYNDROME NEONATAL [None]
  - EXTENSOR PLANTAR RESPONSE [None]
  - EYELID PTOSIS [None]
  - GENE MUTATION [None]
  - GRAND MAL CONVULSION [None]
  - HYPERTELORISM OF ORBIT [None]
  - JAW DISORDER [None]
  - JOINT CONTRACTURE [None]
  - KYPHOSIS [None]
  - MATERNAL CONDITION AFFECTING FOETUS [None]
  - NEONATAL DISORDER [None]
  - NEONATAL PNEUMONIA [None]
  - NOSE DEFORMITY [None]
  - PNEUMONIA STREPTOCOCCAL [None]
  - SKULL MALFORMATION [None]
  - SYNOSTOSIS [None]
  - TORTICOLLIS [None]
  - ULTRASOUND ABDOMEN ABNORMAL [None]
